FAERS Safety Report 5868995-7 (Version None)
Quarter: 2008Q3

REPORT INFORMATION
  Report Type: 
  Country: None (occurrence: None)
  Receive Date: 20080903
  Receipt Date: 20080827
  Transmission Date: 20090109
  Serious: Yes (Hospitalization, Other)
  Sender: FDA-Public Use
  Company Number: US-AVENTIS-200815628US

PATIENT
  Sex: Male
  Weight: 106.6 kg

DRUGS (15)
  1. LANTUS [Suspect]
     Route: 058
     Dates: start: 20010101
  2. LANTUS [Suspect]
     Dosage: DOSE: OCCASIONALLY INCREASES DOSE ACCORDING TO SUGAR LEVELS
     Route: 058
     Dates: start: 20010101
  3. ANTIBIOTICS [Suspect]
     Dosage: DOSE: UNK
  4. AVODART [Concomitant]
  5. CYMBALTA [Concomitant]
  6. FUROSEMIDE [Concomitant]
  7. LISINOPRIL [Concomitant]
     Indication: HYPERTENSION
  8. PROTONIX [Concomitant]
  9. ASPIRIN [Concomitant]
     Dosage: DOSE: ^HALF AN ADULT^
  10. METFORMIN HCL [Concomitant]
  11. KLOR-CON [Concomitant]
     Dosage: DOSE: 10 ^MG^
  12. CRESTOR [Concomitant]
  13. HUMALOG [Concomitant]
     Dosage: DOSE: 7 OR 8 UNITS DEPENDING ON SUGAR
  14. VERAPAMIL [Concomitant]
     Indication: HYPERTENSION
  15. PROVENTIL                          /00139501/ [Concomitant]
     Indication: ASTHMA
     Dosage: DOSE: UNK
     Route: 055

REACTIONS (3)
  - DRUG HYPERSENSITIVITY [None]
  - DYSPNOEA [None]
  - RENAL FAILURE [None]
